FAERS Safety Report 6159088-2 (Version None)
Quarter: 2009Q2

REPORT INFORMATION
  Report Type: 
  Country: None (occurrence: None)
  Receive Date: 20090417
  Receipt Date: 20090414
  Transmission Date: 20091009
  Serious: Yes (Death, Hospitalization)
  Sender: FDA-Public Use
  Company Number: PHHY2009TR13882

PATIENT
  Age: 64 Year
  Sex: Female

DRUGS (1)
  1. OCTREOTIDE ACETATE [Suspect]
     Indication: CARCINOID SYNDROME
     Dosage: 0.1 MG, TID
     Route: 058

REACTIONS (3)
  - ATRIAL FIBRILLATION [None]
  - DEATH [None]
  - TACHYCARDIA [None]
